FAERS Safety Report 5884045-0 (Version None)
Quarter: 2008Q3

REPORT INFORMATION
  Report Type: 
  Country: None (occurrence: None)
  Receive Date: 20080915
  Receipt Date: 20080905
  Transmission Date: 20090109
  Serious: Yes (Hospitalization, Disabling)
  Sender: FDA-Public Use
  Company Number: US-MERCK-0606USA03193

PATIENT
  Age: 45 Year
  Sex: Female

DRUGS (3)
  1. FOSAMAX [Suspect]
     Indication: OSTEOPOROSIS
     Route: 048
     Dates: start: 20000210
  2. FOSAMAX [Suspect]
     Route: 048
     Dates: start: 20010125, end: 20060101
  3. HYDROCHLOROTHIAZIDE [Concomitant]
     Route: 065

REACTIONS (27)
  - ABDOMINAL PAIN [None]
  - ANOGENITAL WARTS [None]
  - ANOREXIA [None]
  - CLOSTRIDIUM DIFFICILE COLITIS [None]
  - CONSTIPATION [None]
  - DIABETES MELLITUS [None]
  - DIARRHOEA [None]
  - DYSGEUSIA [None]
  - FACIAL PALSY [None]
  - FISTULA [None]
  - HOSPITALISATION [None]
  - HYPERCALCAEMIA [None]
  - HYPERKALAEMIA [None]
  - NAUSEA [None]
  - NEUROPATHY PERIPHERAL [None]
  - NEUTROPENIA [None]
  - OFF LABEL USE [None]
  - OSTEOMYELITIS [None]
  - OSTEONECROSIS [None]
  - PANCREATITIS CHRONIC [None]
  - PNEUMONIA [None]
  - RECTAL HAEMORRHAGE [None]
  - REFLUX OESOPHAGITIS [None]
  - SIDEROBLASTIC ANAEMIA [None]
  - SQUAMOUS CELL CARCINOMA OF SKIN [None]
  - TRANSIENT ISCHAEMIC ATTACK [None]
  - VOMITING [None]
